FAERS Safety Report 11690258 (Version 4)
Quarter: 2015Q4

REPORT INFORMATION
  Report Type: Spontaneous
  Country: JP (occurrence: JP)
  Receive Date: 20151102
  Receipt Date: 20151228
  Transmission Date: 20160304
  Serious: Yes (Hospitalization, Disabling, Other)
  Sender: FDA-Public Use
  Company Number: PHJP2015JP019193

PATIENT
  Age: 67 Year
  Sex: Female
  Weight: 44 kg

DRUGS (5)
  1. CYCLOPHOSPHAMIDE. [Concomitant]
     Active Substance: CYCLOPHOSPHAMIDE
     Indication: BREAST CANCER
     Dosage: 10 MG, UNK
     Route: 065
     Dates: start: 200512
  2. FLUOROURACIL. [Concomitant]
     Active Substance: FLUOROURACIL
     Indication: BREAST CANCER
     Dosage: 750 MG, UNK
     Route: 065
     Dates: start: 200512
  3. ZOMETA [Suspect]
     Active Substance: ZOLEDRONIC ACID
     Indication: METASTASES TO BONE
     Dosage: UNK
     Route: 041
     Dates: start: 20060724, end: 201201
  4. ZOMETA [Suspect]
     Active Substance: ZOLEDRONIC ACID
     Indication: BREAST CANCER METASTATIC
  5. EPIRUBICIN [Concomitant]
     Active Substance: EPIRUBICIN
     Indication: BREAST CANCER
     Dosage: 80 MG, UNK
     Route: 065
     Dates: start: 200512

REACTIONS (13)
  - Gingivitis [Unknown]
  - Soft tissue infection [Unknown]
  - Fistula [Recovered/Resolved with Sequelae]
  - Fistula [Recovered/Resolved with Sequelae]
  - Tooth loss [Unknown]
  - Primary sequestrum [Unknown]
  - Osteonecrosis of jaw [Recovered/Resolved with Sequelae]
  - Oral mucosal erythema [Unknown]
  - Mouth swelling [Unknown]
  - Tenderness [Unknown]
  - Femur fracture [Unknown]
  - Exposed bone in jaw [Unknown]
  - Oral discharge [Unknown]

NARRATIVE: CASE EVENT DATE: 201005
